FAERS Safety Report 7247794-8 (Version None)
Quarter: 2011Q1

REPORT INFORMATION
  Report Type: 
  Country: None (occurrence: None)
  Receive Date: 20110127
  Receipt Date: 20110114
  Transmission Date: 20110831
  Serious: Yes (Hospitalization)
  Sender: FDA-Public Use
  Company Number: SI-ELI_LILLY_AND_COMPANY-SI201101003882

PATIENT
  Age: 14 Year
  Sex: Male
  Weight: 58 kg

DRUGS (2)
  1. ATOMOXETINE HCL [Suspect]
     Indication: ATTENTION DEFICIT/HYPERACTIVITY DISORDER
     Dosage: 60 MG, UNK
     Dates: start: 20090101, end: 20100701
  2. ATOMOXETINE HCL [Suspect]
     Dosage: 60 MG, UNK
     Dates: start: 20100929

REACTIONS (2)
  - EOSINOPHILIA [None]
  - ENTEROCOLITIS [None]
